FAERS Safety Report 24845066 (Version 1)
Quarter: 2025Q1

REPORT INFORMATION
  Report Type: Spontaneous
  Country: US (occurrence: None)
  Receive Date: 20250115
  Receipt Date: 20250115
  Transmission Date: 20250409
  Serious: No
  Sender: FDA-CTU
  Company Number: None

PATIENT
  Sex: Female

DRUGS (4)
  1. BOSENTAN [Suspect]
     Active Substance: BOSENTAN
     Indication: Pulmonary arterial hypertension
     Dosage: FREQUENCY : TWICE A DAY;?
     Route: 048
     Dates: start: 202203
  2. TADALAFIL [Suspect]
     Active Substance: TADALAFIL
  3. TREPROSTINIL [Suspect]
     Active Substance: TREPROSTINIL
  4. DEVICE [Suspect]
     Active Substance: DEVICE

REACTIONS (6)
  - Dyspnoea [None]
  - Diarrhoea [None]
  - Muscular weakness [None]
  - Device dislocation [None]
  - Vein rupture [None]
  - Product administration interrupted [None]
